FAERS Safety Report 7287499-0 (Version None)
Quarter: 2011Q1

REPORT INFORMATION
  Report Type: 
  Country: None (occurrence: None)
  Receive Date: 20110211
  Receipt Date: 20110208
  Transmission Date: 20110831
  Serious: Yes (Hospitalization)
  Sender: FDA-Public Use
  Company Number: CA-SANOFI-AVENTIS-200816263GDDC

PATIENT
  Age: 71 Year
  Sex: Female
  Weight: 53 kg

DRUGS (26)
  1. AFLIBERCEPT [Suspect]
     Indication: NON-SMALL CELL LUNG CANCER
     Dosage: DOSE UNIT: 6 MG/KG
     Route: 042
     Dates: start: 20080613, end: 20080613
  2. EVISTA [Concomitant]
     Dates: start: 19881201
  3. ACETAMINOPHEN [Concomitant]
     Dates: start: 20080625, end: 20080719
  4. POTASSIUM CHLORIDE W/SODIUM CHLORIDE [Concomitant]
     Dates: start: 20080625, end: 20080704
  5. UNKNOWN DRUG [Concomitant]
     Dates: start: 20080707, end: 20080714
  6. ESCITALOPRAM OXALATE [Concomitant]
     Dates: start: 20080626
  7. VITAMIN D [Concomitant]
     Dosage: DOSE:1000 UNIT(S)
     Dates: start: 20080626
  8. ALENDRONATE SODIUM [Concomitant]
     Dates: start: 20080619
  9. CIPROFLOXACIN [Concomitant]
     Dates: start: 20080707, end: 20080711
  10. TOBRAMYCIN SULFATE [Concomitant]
     Dates: start: 20080627, end: 20080702
  11. ESCITALOPRAM OXALATE [Concomitant]
     Dosage: DOSE UNIT: 10 MG
  12. RALOXIFENE HYDROCHLORIDE [Concomitant]
     Route: 048
     Dates: start: 20080625
  13. HEPARIN [Concomitant]
     Dates: start: 20080626, end: 20080719
  14. FENTANYL CITRATE [Concomitant]
     Dates: start: 20080708, end: 20080708
  15. CITALOPRAM HYDROBROMIDE [Concomitant]
     Dates: start: 19881201
  16. LASIX [Concomitant]
     Dates: start: 20080702, end: 20080702
  17. NATURAL TEARS [Concomitant]
     Dates: start: 20080704, end: 20080719
  18. PENCILLIN [Concomitant]
     Dates: start: 20080716, end: 20080804
  19. GRAMICIDIN/POLYMYXIN B SULFATE [Concomitant]
     Dates: start: 20080707, end: 20080707
  20. DOCETAXEL [Suspect]
     Indication: NON-SMALL CELL LUNG CANCER
     Dosage: DOSE UNIT: 75 MG/M**2
     Route: 042
     Dates: start: 20080613, end: 20080613
  21. CORTICOSTEROID NOS [Concomitant]
  22. FOSAMAX [Concomitant]
     Dates: start: 19881201
  23. CALTRATE [Concomitant]
     Dates: start: 20080626
  24. DIMENHYDRINATE [Concomitant]
     Dates: start: 20080625, end: 20080719
  25. STOMATOLOGICALS, MOUTH PREPARATIONS [Concomitant]
     Dates: start: 20080529
  26. PIPERACILLIN AND TAZOBACTAM [Concomitant]
     Dates: start: 20080627, end: 20080707

REACTIONS (5)
  - PNEUMONIA NECROTISING [None]
  - LUNG ABSCESS [None]
  - ATELECTASIS [None]
  - DIARRHOEA [None]
  - PLEURAL EFFUSION [None]
